FAERS Safety Report 18908015 (Version 1)
Quarter: 2021Q1

REPORT INFORMATION
  Report Type: Spontaneous
  Country: US (occurrence: US)
  Receive Date: 20210218
  Receipt Date: 20210218
  Transmission Date: 20210420
  Serious: Yes (Death, Other)
  Sender: FDA-Public Use
  Company Number: US-CURIUM-1990000059

PATIENT
  Age: 65 Year
  Sex: Female

DRUGS (1)
  1. TECHNESCAN HDP [Suspect]
     Active Substance: TECHNETIUM TC-99M OXIDRONATE
     Indication: BONE SCAN

REACTIONS (5)
  - Tachycardia [Fatal]
  - Cardiac arrest [Fatal]
  - Dyspnoea [Fatal]
  - Pulmonary oedema [Fatal]
  - Anxiety [Unknown]
